FAERS Safety Report 9967333 (Version 2)
Quarter: 2014Q1

REPORT INFORMATION
  Report Type: Report from Study
  Country: US (occurrence: US)
  Receive Date: 20140305
  Receipt Date: 20140305
  Transmission Date: 20141002
  Serious: No
  Sender: FDA-Public Use
  Company Number: US-ABBVIE-13P-163-1123273-00

PATIENT
  Age: 35 Year
  Sex: Female

DRUGS (8)
  1. HUMIRA [Suspect]
     Indication: COLITIS ULCERATIVE
     Dates: start: 20130521
  2. HUMIRA [Suspect]
     Dosage: MICRO INDUCTION THERAPY
     Dates: start: 20130820, end: 20130820
  3. HUMIRA [Suspect]
     Dates: start: 20130903, end: 20130903
  4. HUMIRA [Suspect]
  5. METHOTREXATE [Concomitant]
     Indication: COLITIS ULCERATIVE
  6. PREDNISONE [Concomitant]
     Indication: COLITIS ULCERATIVE
     Dosage: TAPERING DOSE
  7. PREDNISONE [Concomitant]
  8. UCERIS [Concomitant]
     Indication: PRODUCT USED FOR UNKNOWN INDICATION
     Dates: start: 20130820

REACTIONS (5)
  - Injection site swelling [Not Recovered/Not Resolved]
  - Injection site swelling [Not Recovered/Not Resolved]
  - Injection site erythema [Not Recovered/Not Resolved]
  - Injection site urticaria [Not Recovered/Not Resolved]
  - Injection site pruritus [Not Recovered/Not Resolved]
